FAERS Safety Report 9386194 (Version 2)
Quarter: 2013Q3

REPORT INFORMATION
  Report Type: Spontaneous
  Country: TW (occurrence: TW)
  Receive Date: 20130708
  Receipt Date: 20130723
  Transmission Date: 20140515
  Serious: Yes (Death, Life-Threatening, Other)
  Sender: FDA-Public Use
  Company Number: TW-ROCHE-1244907

PATIENT
  Age: 72 Year
  Sex: Male

DRUGS (2)
  1. ALTEPLASE [Suspect]
     Indication: ISCHAEMIC STROKE
     Route: 042
  2. DALTEPARIN SODIUM [Suspect]
     Indication: ISCHAEMIC STROKE
     Route: 065

REACTIONS (10)
  - Multi-organ failure [Fatal]
  - Respiratory failure [Unknown]
  - Cyanosis [Unknown]
  - Ischaemic stroke [Unknown]
  - Cerebral infarction [Unknown]
  - Hemiparesis [Unknown]
  - Muscular weakness [Unknown]
  - Subarachnoid haemorrhage [Unknown]
  - Coma [Unknown]
  - Peripheral embolism [Unknown]
